FAERS Safety Report 21648649 (Version 1)
Quarter: 2022Q4

REPORT INFORMATION
  Report Type: Report from Study
  Country: US (occurrence: US)
  Receive Date: 20221128
  Receipt Date: 20221128
  Transmission Date: 20230112
  Serious: Yes (Hospitalization)
  Sender: FDA-Public Use
  Company Number: US-SAMOHPHARM-2022005893

PATIENT

DRUGS (4)
  1. CARBAGLU [Suspect]
     Active Substance: CARGLUMIC ACID
     Indication: Hyperglycinaemia
     Dosage: 170 MILLIGRAM, Q6H
     Dates: start: 20221026
  2. CARBAGLU [Suspect]
     Active Substance: CARGLUMIC ACID
     Dosage: 2 CARBAGLU TABLETS EVERY 12 HOURS, DOSE INCREASED
     Dates: start: 202211
  3. LEVOCARNITINE [Concomitant]
     Active Substance: LEVOCARNITINE
     Indication: Product used for unknown indication
     Dosage: UNK
  4. LEVOCARNITINE [Concomitant]
     Active Substance: LEVOCARNITINE
     Dosage: DOSE WAS CHANGED

REACTIONS (2)
  - Ammonia increased [Unknown]
  - Vomiting [Unknown]

NARRATIVE: CASE EVENT DATE: 20221110
